FAERS Safety Report 24695059 (Version 1)
Quarter: 2024Q4

REPORT INFORMATION
  Report Type: Spontaneous
  Country: US (occurrence: None)
  Receive Date: 20241204
  Receipt Date: 20241204
  Transmission Date: 20250114
  Serious: Yes (Other)
  Sender: Public
  Company Number: None

PATIENT
  Age: 40 Year
  Sex: Female
  Weight: 58.5 kg

DRUGS (2)
  1. HERBALS\MITRAGYNINE [Suspect]
     Active Substance: HERBALS\MITRAGYNINE
     Indication: Depression
     Dates: start: 20240301
  2. CLONIDINE [Concomitant]
     Active Substance: CLONIDINE

REACTIONS (1)
  - Drug dependence [None]

NARRATIVE: CASE EVENT DATE: 20240301
